FAERS Safety Report 4577758-4 (Version None)
Quarter: 2005Q1

REPORT INFORMATION
  Report Type: 
  Country: None (occurrence: None)
  Receive Date: 20050209
  Receipt Date: 20050126
  Transmission Date: 20050727
  Serious: Yes (Death)
  Sender: FDA-Public Use
  Company Number: 2004AL000715

PATIENT
  Age: 51 Year
  Sex: Male

DRUGS (5)
  1. KADIAN [Suspect]
     Dosage: PO
     Route: 048
  2. VENLAFAXINE HCL [Suspect]
     Dosage: PO
     Route: 048
  3. COCAINE [Suspect]
     Dosage: PO
     Route: 048
  4. CODEINE [Suspect]
     Dosage: PO
     Route: 048
  5. SALICYLATES [Suspect]
     Dosage: PO
     Route: 048

REACTIONS (7)
  - CARDIO-RESPIRATORY ARREST [None]
  - COMA [None]
  - CONTUSION [None]
  - DRUG ABUSER [None]
  - MULTIPLE DRUG OVERDOSE [None]
  - PNEUMONIA ASPIRATION [None]
  - PULMONARY CONGESTION [None]
